FAERS Safety Report 17875629 (Version 1)
Quarter: 2020Q3

REPORT INFORMATION
  Report Type: Spontaneous
  Country: US (occurrence: US)
  Receive Date: 20200609
  Receipt Date: 20200609
  Transmission Date: 20201104
  Serious: Yes (Hospitalization)
  Sender: FDA-Public Use
  Company Number: None

PATIENT
  Age: 36 Year
  Sex: Female
  Weight: 71.1 kg

DRUGS (1)
  1. SACITUZUMAB GOVITECAN. [Suspect]
     Active Substance: SACITUZUMAB GOVITECAN
     Indication: TRIPLE NEGATIVE BREAST CANCER
     Route: 042
     Dates: start: 20200424, end: 20200424

REACTIONS (7)
  - Sepsis [None]
  - Anaemia [None]
  - Sinus tachycardia [None]
  - Hypotension [None]
  - Hypokalaemia [None]
  - Hypomagnesaemia [None]
  - Leukocytosis [None]

NARRATIVE: CASE EVENT DATE: 20200522
